FAERS Safety Report 4367038-4 (Version None)
Quarter: 2004Q2

REPORT INFORMATION
  Report Type: 
  Country: None (occurrence: None)
  Receive Date: 20040527
  Receipt Date: 20040527
  Transmission Date: 20050107
  Serious: Yes (Disabling, Other)
  Sender: FDA-Public Use
  Company Number: None

PATIENT
  Age: 46 Year
  Sex: Female

DRUGS (1)
  1. FLUOXETINE [Suspect]
     Indication: DEPRESSION
     Dosage: ONE PO QD (SEVERAL WEEKS)
     Route: 048
     Dates: start: 20011101

REACTIONS (2)
  - DEPRESSION [None]
  - PHARMACEUTICAL PRODUCT COMPLAINT [None]
